FAERS Safety Report 10901194 (Version 2)
Quarter: 2015Q2

REPORT INFORMATION
  Report Type: Spontaneous
  Country: JP (occurrence: JP)
  Receive Date: 20150310
  Receipt Date: 20150608
  Transmission Date: 20150821
  Serious: Yes (Death)
  Sender: FDA-Public Use
  Company Number: JP-MYLANLABS-2015M1007285

PATIENT

DRUGS (4)
  1. EPZICOM [Concomitant]
     Active Substance: ABACAVIR SULFATE\LAMIVUDINE
     Indication: HIV INFECTION
     Route: 065
  2. CLARITHROMYCIN TAB. 200MG ^MYLAN^ [Interacting]
     Active Substance: CLARITHROMYCIN
     Indication: RASH PRURITIC
     Route: 065
  3. SILDENAFIL. [Suspect]
     Active Substance: SILDENAFIL
     Route: 065
  4. KALETRA [Interacting]
     Active Substance: LOPINAVIR\RITONAVIR
     Indication: HIV INFECTION
     Route: 065

REACTIONS (4)
  - Sudden cardiac death [Fatal]
  - Electrocardiogram J wave increased [Fatal]
  - Drug interaction [Fatal]
  - Arrhythmogenic right ventricular dysplasia [Fatal]
